FAERS Safety Report 15940234 (Version 3)
Quarter: 2019Q1

REPORT INFORMATION
  Report Type: Report from Study
  Country: US (occurrence: US)
  Receive Date: 20190208
  Receipt Date: 20190315
  Transmission Date: 20190417
  Serious: Yes (Other)
  Sender: FDA-Public Use
  Company Number: US-GILEAD-2019-0383330

PATIENT
  Age: 70 Year
  Sex: Female

DRUGS (4)
  1. XARELTO [Concomitant]
     Active Substance: RIVAROXABAN
  2. TYVASO [Suspect]
     Active Substance: TREPROSTINIL
     Dosage: 8 BREATHS
  3. AMBRISENTAN [Suspect]
     Active Substance: AMBRISENTAN
     Indication: PRODUCT USED FOR UNKNOWN INDICATION
     Dosage: 10 MG, QD
     Route: 065
     Dates: start: 20180124
  4. TYVASO [Suspect]
     Active Substance: TREPROSTINIL
     Indication: PRODUCT USED FOR UNKNOWN INDICATION
     Dosage: 11 BREATHS
     Route: 065

REACTIONS (8)
  - Fall [Unknown]
  - Headache [Not Recovered/Not Resolved]
  - Clavicle fracture [Unknown]
  - Cough [Unknown]
  - Feeling abnormal [Recovered/Resolved]
  - Feeling abnormal [Unknown]
  - Ill-defined disorder [Unknown]
  - Condition aggravated [Recovered/Resolved]
